FAERS Safety Report 13740710 (Version 1)
Quarter: 2017Q3

REPORT INFORMATION
  Report Type: Spontaneous
  Country: US (occurrence: US)
  Receive Date: 20170710
  Receipt Date: 20170710
  Transmission Date: 20171127
  Serious: Yes (Hospitalization)
  Sender: FDA-Public Use
  Company Number: None

PATIENT
  Sex: Male

DRUGS (1)
  1. ENBREL [Suspect]
     Active Substance: ETANERCEPT
     Dosage: ?          OTHER FREQUENCY:WEEKLY;?
     Route: 058
     Dates: start: 20170301, end: 20170625

REACTIONS (4)
  - Injury associated with device [None]
  - Immune system disorder [None]
  - Bacteraemia [None]
  - Infection [None]

NARRATIVE: CASE EVENT DATE: 20170629
